FAERS Safety Report 13732375 (Version 2)
Quarter: 2019Q3

REPORT INFORMATION
  Report Type: Report from Study
  Country: US (occurrence: US)
  Receive Date: 20170707
  Receipt Date: 20190801
  Transmission Date: 20191004
  Serious: No
  Sender: FDA-Public Use
  Company Number: US-SA-2017SA098638

PATIENT
  Age: 30 Year
  Sex: Male

DRUGS (1)
  1. DUPILUMAB [Suspect]
     Active Substance: DUPILUMAB
     Indication: DERMATITIS ATOPIC
     Dosage: 300 MG, QOW
     Route: 058
     Dates: start: 201705

REACTIONS (2)
  - Influenza [Recovered/Resolved]
  - Injection site mass [Unknown]

NARRATIVE: CASE EVENT DATE: 201705
